FAERS Safety Report 22017301 (Version 1)
Quarter: 2023Q1

REPORT INFORMATION
  Report Type: Spontaneous
  Country: GB (occurrence: GB)
  Receive Date: 20230221
  Receipt Date: 20230221
  Transmission Date: 20230418
  Serious: Yes (Other)
  Sender: FDA-Public Use
  Company Number: None

PATIENT
  Age: 6 Year
  Sex: Female

DRUGS (1)
  1. MONTELUKAST SODIUM [Suspect]
     Active Substance: MONTELUKAST SODIUM
     Indication: Asthma
     Dosage: 5MG ONCE A DAY AT NIGHT; ;
     Dates: start: 20210728, end: 20230206

REACTIONS (6)
  - Medication error [Unknown]
  - Anxiety [Recovering/Resolving]
  - Abnormal behaviour [Recovering/Resolving]
  - Depressed mood [Recovering/Resolving]
  - Aggression [Recovering/Resolving]
  - Personality change [Recovering/Resolving]

NARRATIVE: CASE EVENT DATE: 20210731
